FAERS Safety Report 8374842-4 (Version None)
Quarter: 2012Q2

REPORT INFORMATION
  Report Type: 
  Country: None (occurrence: None)
  Receive Date: 20120521
  Receipt Date: 20120516
  Transmission Date: 20120825
  Serious: Yes (Disabling)
  Sender: FDA-Public Use
  Company Number: MX-ABBOTT-12P-107-0932321-00

PATIENT
  Sex: Female
  Weight: 78 kg

DRUGS (10)
  1. CORTISONE ACETATE [Concomitant]
     Indication: PRODUCT USED FOR UNKNOWN INDICATION
     Dates: start: 20120415, end: 20120415
  2. HUMIRA [Suspect]
     Indication: RHEUMATOID ARTHRITIS
     Route: 058
     Dates: start: 20120316
  3. METICORTEN [Concomitant]
     Indication: RHEUMATOID ARTHRITIS
     Dates: start: 20111201
  4. FOLIC ACID [Concomitant]
     Indication: RHEUMATOID ARTHRITIS
     Route: 048
     Dates: start: 20111201
  5. CORTISONE ACETATE [Concomitant]
     Dates: start: 20120416, end: 20120416
  6. LOSARTAN POTASSIUM [Concomitant]
     Indication: PAIN
     Route: 048
     Dates: start: 20111201
  7. CORTISONE ACETATE [Concomitant]
     Dates: start: 20120417, end: 20120417
  8. PREZOLAM [Concomitant]
     Indication: INSOMNIA
     Route: 048
     Dates: start: 20111201
  9. JANUVIA [Concomitant]
     Indication: PAIN
     Dosage: 1.5 TABS PER DAY
     Route: 048
     Dates: start: 20111201
  10. NEXOPROPOXIFEN [Concomitant]
     Indication: COUGH
     Route: 048
     Dates: start: 20111201

REACTIONS (5)
  - JOINT RANGE OF MOTION DECREASED [None]
  - ARTHRALGIA [None]
  - MUSCULOSKELETAL PAIN [None]
  - PAIN IN EXTREMITY [None]
  - MUSCULOSKELETAL STIFFNESS [None]
